FAERS Safety Report 4392388-5 (Version None)
Quarter: 2004Q3

REPORT INFORMATION
  Report Type: 
  Country: None (occurrence: None)
  Receive Date: 20040702
  Receipt Date: 20040220
  Transmission Date: 20050211
  Serious: Yes (Other)
  Sender: FDA-Public Use
  Company Number: 2004UW03068

PATIENT
  Age: 67 Year
  Sex: Female
  Weight: 72.5755 kg

DRUGS (10)
  1. CRESTOR [Suspect]
     Indication: BLOOD CHOLESTEROL INCREASED
     Dosage: 10 MG QD PO
     Route: 048
     Dates: start: 20040217
  2. INSULIN [Concomitant]
  3. BENICAR HCT [Concomitant]
  4. VERAPAMIL [Concomitant]
  5. ISOSORBIDE [Concomitant]
  6. PACERONE [Concomitant]
  7. LEVOTHROID [Concomitant]
  8. NEXIUM [Concomitant]
  9. ASPIRIN [Concomitant]
  10. ALPHABETIC MULTIVITAMINS [Concomitant]

REACTIONS (1)
  - HEAD DISCOMFORT [None]
